FAERS Safety Report 17205799 (Version 2)
Quarter: 2024Q2

REPORT INFORMATION
  Report Type: Spontaneous
  Country: JP (occurrence: JP)
  Receive Date: 20191227
  Receipt Date: 20240509
  Transmission Date: 20240716
  Serious: Yes (Life-Threatening, Hospitalization, Other)
  Sender: FDA-Public Use
  Company Number: JP-ALKEM LABORATORIES LIMITED-JP-ALKEM-2019-04069

PATIENT
  Age: 13 Year
  Sex: Female

DRUGS (11)
  1. MYCOPHENOLATE MOFETIL [Suspect]
     Active Substance: MYCOPHENOLATE MOFETIL
     Indication: Immunosuppressant drug therapy
     Dosage: UNK
     Route: 048
  2. MYCOPHENOLATE MOFETIL [Suspect]
     Active Substance: MYCOPHENOLATE MOFETIL
     Dosage: UNK (RECHALLENGE DOSE)
     Route: 048
  3. TACROLIMUS [Suspect]
     Active Substance: TACROLIMUS
     Indication: Immunosuppressant drug therapy
     Dosage: UNK
     Route: 048
  4. TACROLIMUS [Suspect]
     Active Substance: TACROLIMUS
     Dosage: UNK (RESUMED DOSE)
     Route: 048
  5. TACROLIMUS [Suspect]
     Active Substance: TACROLIMUS
     Dosage: UNK (RECHALLENGE DOSE)
     Route: 048
  6. METHYLPREDNISOLONE [Suspect]
     Active Substance: METHYLPREDNISOLONE
     Indication: Immunosuppressant drug therapy
     Dosage: UNK
     Route: 048
  7. METHYLPREDNISOLONE [Suspect]
     Active Substance: METHYLPREDNISOLONE
     Dosage: UNK (RESUMED DOSE)
     Route: 048
  8. METHYLPREDNISOLONE [Suspect]
     Active Substance: METHYLPREDNISOLONE
     Dosage: UNK (RECHALLENGE DOSE)
     Route: 048
  9. ACYCLOVIR [Suspect]
     Active Substance: ACYCLOVIR
     Indication: Disseminated varicella zoster vaccine virus infection
     Dosage: 30 MILLIGRAM/KILOGRAM, QD (PER DAY)
     Route: 042
  10. ACYCLOVIR [Suspect]
     Active Substance: ACYCLOVIR
     Dosage: UNK
     Route: 048
  11. HUMAN IMMUNOGLOBULIN G [Suspect]
     Active Substance: HUMAN IMMUNOGLOBULIN G
     Indication: Disseminated varicella zoster vaccine virus infection
     Dosage: 125 MILLIGRAM/KILOGRAM, QD (PER DAY)
     Route: 042

REACTIONS (12)
  - Disseminated intravascular coagulation [Recovered/Resolved]
  - Generalised tonic-clonic seizure [Recovered/Resolved]
  - Multiple organ dysfunction syndrome [Recovered/Resolved]
  - Myelosuppression [Recovered/Resolved]
  - Cytomegalovirus infection [Recovered/Resolved]
  - Disseminated varicella zoster vaccine virus infection [Recovered/Resolved]
  - Encephalitis [Recovered/Resolved]
  - Hepatitis acute [Recovered/Resolved]
  - Infection reactivation [Recovered/Resolved]
  - Neutropenia [Recovered/Resolved]
  - Pneumonia [Recovered/Resolved]
  - Varicella zoster virus infection [Recovered/Resolved]
